FAERS Safety Report 18096092 (Version 7)
Quarter: 2021Q3

REPORT INFORMATION
  Report Type: Spontaneous
  Country: US (occurrence: US)
  Receive Date: 20200731
  Receipt Date: 20210707
  Transmission Date: 20211014
  Serious: No
  Sender: FDA-Public Use
  Company Number: US-GLAXOSMITHKLINE-US2020AMR146000

PATIENT
  Sex: Female

DRUGS (5)
  1. ZEJULA [Suspect]
     Active Substance: NIRAPARIB
     Dosage: 200 MG, QD
  2. ZEJULA [Suspect]
     Active Substance: NIRAPARIB
     Dosage: 200 MG, QD
     Route: 065
  3. ZEJULA [Suspect]
     Active Substance: NIRAPARIB
     Dosage: 200 MG, QD
     Route: 065
  4. ZEJULA [Suspect]
     Active Substance: NIRAPARIB
     Dosage: 200 MG, QD
     Route: 048
  5. ZEJULA [Suspect]
     Active Substance: NIRAPARIB
     Indication: OVARIAN CANCER
     Dosage: 300 MG, QD
     Route: 048
     Dates: start: 20200704

REACTIONS (13)
  - Bone pain [Unknown]
  - Insomnia [Recovered/Resolved]
  - Influenza [Unknown]
  - Rash papular [Unknown]
  - Nausea [Unknown]
  - Platelet count decreased [Unknown]
  - Dyspnoea [Unknown]
  - Illness [Unknown]
  - Coagulopathy [Unknown]
  - Product dose omission issue [Unknown]
  - Back pain [Unknown]
  - Vomiting [Unknown]
  - Tumour marker increased [Unknown]
